FAERS Safety Report 17554220 (Version 1)
Quarter: 2020Q1

REPORT INFORMATION
  Report Type: Spontaneous
  Country: DK (occurrence: DK)
  Receive Date: 20200318
  Receipt Date: 20200318
  Transmission Date: 20200409
  Serious: Yes (Hospitalization, Other)
  Sender: FDA-Public Use
  Company Number: DK-AMGEN-DNKSP2020043247

PATIENT
  Age: 47 Year
  Sex: Female

DRUGS (3)
  1. ELETRIPTAN. [Concomitant]
     Active Substance: ELETRIPTAN
     Indication: MIGRAINE
     Dosage: 40 MILLIGRAM, AS NECESSARY (START DATE IS UNKNOWN, BUT AT LEAST SINCE SEPTEMBER 2017)
     Route: 048
  2. AIMOVIG [Suspect]
     Active Substance: ERENUMAB-AOOE
     Indication: MIGRAINE
     Dosage: 140 MILLIGRAM, Q4WK ((STRENGTH: 70 MG))
     Route: 058
     Dates: start: 20190912
  3. CITALOPRAM [Concomitant]
     Active Substance: CITALOPRAM HYDROBROMIDE
     Indication: DEPRESSION
     Dosage: 30 MILLIGRAM, QD (START DATE IS UNKNOWN, BUT AT LEAST SINCE AUGUST 2019)
     Route: 048

REACTIONS (4)
  - Pyrexia [Recovering/Resolving]
  - Hydronephrosis [Recovering/Resolving]
  - Pyelonephritis [Recovering/Resolving]
  - Hydroureter [Recovering/Resolving]

NARRATIVE: CASE EVENT DATE: 201911
